FAERS Safety Report 11582282 (Version 1)
Quarter: 2015Q4

REPORT INFORMATION
  Report Type: Spontaneous
  Country: US (occurrence: US)
  Receive Date: 20151001
  Receipt Date: 20151001
  Transmission Date: 20160304
  Serious: Yes (Other)
  Sender: FDA-Public Use
  Company Number: US-ROCHE-682774

PATIENT
  Sex: Male

DRUGS (2)
  1. RIBAVIRIN. [Suspect]
     Active Substance: RIBAVIRIN
     Indication: HEPATITIS C
     Route: 065
     Dates: start: 2004, end: 2005
  2. PEGASYS [Suspect]
     Active Substance: PEGINTERFERON ALFA-2A
     Indication: HEPATITIS C
     Route: 065
     Dates: start: 2004, end: 2005

REACTIONS (5)
  - Mental impairment [Unknown]
  - Drug ineffective [Unknown]
  - Virologic failure [Unknown]
  - General physical health deterioration [Unknown]
  - Hypothyroidism [Not Recovered/Not Resolved]
